FAERS Safety Report 24225645 (Version 1)
Quarter: 2024Q3

REPORT INFORMATION
  Report Type: Spontaneous
  Country: US (occurrence: US)
  Receive Date: 20240820
  Receipt Date: 20240820
  Transmission Date: 20241017
  Serious: No
  Sender: BIOVITRUM
  Company Number: US-BIOVITRUM-2024-US-011023

PATIENT
  Age: 77 Year
  Sex: Female

DRUGS (3)
  1. VONJO [Suspect]
     Active Substance: PACRITINIB
     Indication: Chronic myeloid leukaemia
     Dosage: DAILY
     Route: 048
     Dates: start: 20230225
  2. VONJO [Suspect]
     Active Substance: PACRITINIB
     Indication: Philadelphia chromosome positive
  3. VONJO [Suspect]
     Active Substance: PACRITINIB
     Indication: Remission not achieved

REACTIONS (3)
  - Product use issue [Unknown]
  - Ill-defined disorder [Unknown]
  - Intentional product misuse [Recovered/Resolved]

NARRATIVE: CASE EVENT DATE: 20230225
